FAERS Safety Report 12105042 (Version 1)
Quarter: 2016Q1

REPORT INFORMATION
  Report Type: Spontaneous
  Country: GB (occurrence: GB)
  Receive Date: 20160223
  Receipt Date: 20160223
  Transmission Date: 20160526
  Serious: Yes (Death)
  Sender: FDA-Public Use
  Company Number: GB-TEVA-635807ACC

PATIENT
  Sex: Male

DRUGS (4)
  1. DEXIMUNE [Suspect]
     Active Substance: CYCLOSPORINE
     Route: 065
  2. MYFENAX [Suspect]
     Active Substance: MYCOPHENOLATE MOFETIL
     Route: 065
  3. DEXIMUNE [Suspect]
     Active Substance: CYCLOSPORINE
     Route: 065
  4. PREDNISOLONE. [Suspect]
     Active Substance: PREDNISOLONE
     Route: 065

REACTIONS (1)
  - Death [Fatal]
